FAERS Safety Report 19814095 (Version 2)
Quarter: 2021Q3

REPORT INFORMATION
  Report Type: Spontaneous
  Country: FR (occurrence: FR)
  Receive Date: 20210910
  Receipt Date: 20210917
  Transmission Date: 20211014
  Serious: Yes (Hospitalization, Other)
  Sender: FDA-Public Use
  Company Number: FR-ASTRAZENECA-2021A716805

PATIENT
  Age: 656 Month
  Sex: Male
  Weight: 82 kg

DRUGS (16)
  1. RITUXIMAB. [Concomitant]
     Active Substance: RITUXIMAB
  2. SMECTA [Concomitant]
     Active Substance: MONTMORILLONITE
     Dosage: IF NEEDED
  3. ENDOXAN [Concomitant]
     Active Substance: CYCLOPHOSPHAMIDE
  4. NASONEX [Concomitant]
     Active Substance: MOMETASONE FUROATE
     Indication: NASAL POLYPS
     Dosage: 2 ADMINISTRATION TWICE DAILY IN EACH NOSTRIL DAILY
  5. RHINOMAXIL [Concomitant]
     Active Substance: BECLOMETHASONE DIPROPIONATE
  6. OXYNORM [Concomitant]
     Active Substance: OXYCODONE HYDROCHLORIDE
     Dosage: IF NEEDED
  7. FASENRA [Suspect]
     Active Substance: BENRALIZUMAB
     Indication: ASTHMA
     Route: 058
     Dates: start: 201903
  8. LEVOCETIRIZINE [Concomitant]
     Active Substance: LEVOCETIRIZINE
  9. PARACETAMOL [Concomitant]
     Active Substance: ACETAMINOPHEN
     Dosage: IF NEEDED
  10. LANSOPRAZOLE. [Concomitant]
     Active Substance: LANSOPRAZOLE
  11. FASENRA [Suspect]
     Active Substance: BENRALIZUMAB
     Indication: ASTHMA
     Route: 058
     Dates: start: 201903, end: 20210825
  12. XYZALL [Concomitant]
     Active Substance: LEVOCETIRIZINE DIHYDROCHLORIDE
     Indication: RHINITIS
  13. CORTANCYL [Concomitant]
     Active Substance: PREDNISONE
     Dosage: 80 MG DAILY IF NEEDED
  14. BRICANYL TURBHALER [Concomitant]
     Dosage: 500 MICROGRAMS ON DEMAND
  15. SYMBICORT [Concomitant]
     Active Substance: BUDESONIDE\FORMOTEROL FUMARATE DIHYDRATE
  16. TIORFAN [Concomitant]
     Active Substance: RACECADOTRIL

REACTIONS (7)
  - Diplopia [Not Recovered/Not Resolved]
  - Blood pressure decreased [Unknown]
  - Ear, nose and throat examination abnormal [Unknown]
  - Back pain [Unknown]
  - Myalgia [Unknown]
  - Eosinophilic granulomatosis with polyangiitis [Recovering/Resolving]
  - Hepatic pain [Unknown]

NARRATIVE: CASE EVENT DATE: 202101
